FAERS Safety Report 8570981 (Version 2)
Quarter: 2014Q1

REPORT INFORMATION
  Report Type: Spontaneous
  Country: KR (occurrence: KR)
  Receive Date: 20120521
  Receipt Date: 20140228
  Transmission Date: 20141002
  Serious: Yes (Death)
  Sender: FDA-Public Use
  Company Number: KR-BAYER-2012-047700

PATIENT
  Age: 28 Year
  Sex: Female

DRUGS (3)
  1. YASMIN [Suspect]
     Indication: ABDOMINAL PAIN
     Route: 048
  2. CODEINE [Concomitant]
     Indication: NASOPHARYNGITIS
  3. AMOXICILLIN [Concomitant]
     Indication: NASOPHARYNGITIS

REACTIONS (5)
  - Pulmonary embolism [Fatal]
  - Hypoaesthesia [None]
  - Off label use [None]
  - Dyspnoea [Fatal]
  - Chest discomfort [Fatal]
